FAERS Safety Report 20020627 (Version 1)
Quarter: 2021Q4

REPORT INFORMATION
  Report Type: Report from Study
  Country: US (occurrence: US)
  Receive Date: 20211101
  Receipt Date: 20211101
  Transmission Date: 20220303
  Serious: No
  Sender: FDA-Public Use
  Company Number: US-Ipsen Biopharmaceuticals, Inc.-2021-26120

PATIENT
  Age: 55 Year
  Sex: Male

DRUGS (1)
  1. SOMATULINE DEPOT [Suspect]
     Active Substance: LANREOTIDE ACETATE
     Indication: Acromegaly
     Dosage: 90 MG VIA DEEP SUBCUTANEOUS ROUTE
     Route: 058
     Dates: start: 201905

REACTIONS (3)
  - Pain [Recovered/Resolved]
  - Product administered at inappropriate site [Unknown]
  - Product administered by wrong person [Unknown]
